FAERS Safety Report 9093189 (Version 1)
Quarter: 2013Q1

REPORT INFORMATION
  Report Type: Spontaneous
  Country: US (occurrence: None)
  Receive Date: 20130122
  Receipt Date: 20130122
  Transmission Date: 20140127
  Serious: Yes (Death)
  Sender: FDA-Public Use
  Company Number: 1553134

PATIENT
  Age: 47 Year
  Sex: Male

DRUGS (6)
  1. METOPROLOL [Suspect]
  2. HEROIN [Suspect]
  3. CITALOPRAM [Suspect]
  4. TRAZODONE [Suspect]
  5. ETHANOL [Suspect]
  6. QUININE [Suspect]

REACTIONS (5)
  - Cardiac arrest [None]
  - Respiratory arrest [None]
  - Poisoning [None]
  - Self-medication [None]
  - Intentional drug misuse [None]
